FAERS Safety Report 8375520-8 (Version None)
Quarter: 2012Q1

REPORT INFORMATION
  Report Type: 
  Country: None (occurrence: None)
  Receive Date: 20120323
  Receipt Date: 20110502
  Transmission Date: 20120608
  Serious: Yes (Other)
  Sender: FDA-Public Use
  Company Number: 163-21880-11012931

PATIENT
  Sex: Male
  Weight: 101.6 kg

DRUGS (3)
  1. REVLIMID [Suspect]
  2. REVLIMID [Suspect]
     Indication: MULTIPLE MYELOMA
     Dosage: 25 MG, 1 IN 1 D, PO, 25 MG, 1 IN 1 D, PO
     Route: 048
     Dates: start: 20101130
  3. REVLIMID [Suspect]
     Indication: MULTIPLE MYELOMA
     Dosage: 25 MG, 1 IN 1 D, PO, 25 MG, 1 IN 1 D, PO
     Route: 048
     Dates: start: 20110301

REACTIONS (8)
  - URINE OUTPUT DECREASED [None]
  - PRURITUS [None]
  - RED BLOOD CELL COUNT DECREASED [None]
  - URINE OUTPUT [None]
  - NOCTURIA [None]
  - ANAEMIA [None]
  - PNEUMONIA [None]
  - FATIGUE [None]
